FAERS Safety Report 8756103 (Version 1)
Quarter: 2012Q4

REPORT INFORMATION
  Report Type: 
  Country: US (occurrence: US)
  Receive Date: 20120828
  Receipt Date: 20120828
  Transmission Date: 20130627
  Serious: No
  Sender: FDA-Public Use
  Company Number: US-PFIZER INC-2012208845

PATIENT
  Age: 59 Year
  Sex: Male

DRUGS (4)
  1. NITROSTAT [Suspect]
     Indication: ANGINA PECTORIS
     Dosage: 0.4 mg, as needed
  2. PLAVIX [Concomitant]
     Dosage: UNK
  3. ASPIRIN [Concomitant]
     Dosage: 81 mg, UNK
  4. GLIPIZIDE [Concomitant]
     Dosage: UNK

REACTIONS (3)
  - Poor quality drug administered [Unknown]
  - Drug ineffective [Unknown]
  - Product quality issue [Unknown]
